FAERS Safety Report 16917194 (Version 1)
Quarter: 2019Q4

REPORT INFORMATION
  Report Type: Spontaneous
  Country: JP (occurrence: JP)
  Receive Date: 20191015
  Receipt Date: 20191015
  Transmission Date: 20200122
  Serious: Yes (Life-Threatening, Other)
  Sender: FDA-Public Use
  Company Number: JP-009507513-1908JPN002177J

PATIENT
  Age: 70 Year
  Sex: Male
  Weight: 59 kg

DRUGS (13)
  1. REMIFENTANIL DAIICHI SANKYO [Suspect]
     Active Substance: REMIFENTANIL HYDROCHLORIDE
     Indication: MAINTENANCE OF ANAESTHESIA
     Dosage: UNK, ONGOING
     Route: 042
     Dates: start: 20190415, end: 20190415
  2. REMIFENTANIL DAIICHI SANKYO [Suspect]
     Active Substance: REMIFENTANIL HYDROCHLORIDE
     Indication: ANALGESIC THERAPY
  3. ROPION [Suspect]
     Active Substance: FLURBIPROFEN AXETIL
     Indication: ANALGESIC THERAPY
     Dosage: 50 MILLIGRAM, QD
     Route: 042
     Dates: start: 20190415, end: 20190415
  4. FENTANYL. [Suspect]
     Active Substance: FENTANYL
     Indication: ANALGESIC THERAPY
  5. PROBUCOL [Suspect]
     Active Substance: PROBUCOL
     Dosage: UNK
     Route: 065
  6. ESLAX INTRAVENOUS 25MG/2.5ML [Suspect]
     Active Substance: ROCURONIUM BROMIDE
     Indication: NEUROMUSCULAR BLOCKING THERAPY
     Dosage: 50 MILLIGRAM, QD
     Route: 042
     Dates: start: 20190415, end: 20190415
  7. CLINDAMYCIN. [Suspect]
     Active Substance: CLINDAMYCIN
     Indication: INFECTION PROPHYLAXIS
     Dosage: 600 MILLIGRAM, QD
     Route: 041
     Dates: start: 20190415, end: 20190415
  8. BRIDION [Suspect]
     Active Substance: SUGAMMADEX
     Indication: NEUROMUSCULAR BLOCKADE REVERSAL
     Dosage: 200 MILLIGRAM, QD
     Route: 042
     Dates: start: 20190415, end: 20190415
  9. PROPOFOL. [Suspect]
     Active Substance: PROPOFOL
     Indication: INDUCTION OF ANAESTHESIA
     Dosage: 80 MILLIGRAM, QD
     Route: 042
     Dates: start: 20190415, end: 20190415
  10. PROPOFOL. [Suspect]
     Active Substance: PROPOFOL
     Indication: SEDATION
  11. ESLAX INTRAVENOUS 25MG/2.5ML [Suspect]
     Active Substance: ROCURONIUM BROMIDE
     Dosage: 10 MILLIGRAM, BID
     Route: 042
     Dates: start: 20190415, end: 20190415
  12. FENTANYL. [Suspect]
     Active Substance: FENTANYL
     Indication: INDUCTION OF ANAESTHESIA
     Dosage: 0.05 MILLIGRAM, BID
     Route: 042
     Dates: start: 20190415, end: 20190415
  13. SEVOFLURANE. [Concomitant]
     Active Substance: SEVOFLURANE
     Indication: MAINTENANCE OF ANAESTHESIA
     Dosage: UNK
     Route: 065

REACTIONS (3)
  - Airway peak pressure increased [Recovered/Resolved]
  - Anaphylactic reaction [Recovering/Resolving]
  - Urticaria [Recovered/Resolved]

NARRATIVE: CASE EVENT DATE: 20190415
